FAERS Safety Report 10588562 (Version 1)
Quarter: 2014Q4

REPORT INFORMATION
  Report Type: Spontaneous
  Country: HR (occurrence: HR)
  Receive Date: 20141117
  Receipt Date: 20141117
  Transmission Date: 20150529
  Serious: Yes (Life-Threatening)
  Sender: FDA-Public Use
  Company Number: HR-TEVA-522490ISR

PATIENT
  Sex: Female

DRUGS (3)
  1. MAXITROL [Concomitant]
     Active Substance: DEXAMETHASONE\NEOMYCIN SULFATE\POLYMYXIN B SULFATE
     Indication: INFLAMMATION
     Dosage: LIQUIDS, DROPS
     Route: 047
     Dates: start: 2013
  2. KLAVOCIN BID SIRUP [Suspect]
     Active Substance: AMOXICILLIN\CLAVULANIC ACID
     Indication: UPPER RESPIRATORY TRACT INFECTION
     Dosage: LIQUIDS, DRY SUSPENSIONS/SYRUPS/DROPS
     Route: 048
     Dates: start: 2013
  3. AERIUS [Concomitant]
     Active Substance: DESLORATADINE
     Indication: HYPERSENSITIVITY
     Dosage: 5 MILLIGRAM DAILY;
     Route: 048
     Dates: start: 2013

REACTIONS (7)
  - Muscle spasms [Recovered/Resolved]
  - Hypersensitivity [Recovered/Resolved]
  - Hyperkalaemia [Recovered/Resolved]
  - Trismus [Recovered/Resolved]
  - Paralysis [Recovered/Resolved]
  - Respiratory depression [Recovered/Resolved]
  - Muscular weakness [Recovered/Resolved]

NARRATIVE: CASE EVENT DATE: 2013
